FAERS Safety Report 13903123 (Version 3)
Quarter: 2017Q4

REPORT INFORMATION
  Report Type: Spontaneous
  Country: GB (occurrence: GB)
  Receive Date: 20170824
  Receipt Date: 20171105
  Transmission Date: 20180320
  Serious: Yes (Hospitalization)
  Sender: FDA-Public Use
  Company Number: PHFR2017GB006779

PATIENT
  Age: 73 Year
  Sex: Female

DRUGS (4)
  1. AMLODIPINE [Concomitant]
     Active Substance: AMLODIPINE BESYLATE
     Indication: HYPERTENSION
     Dosage: 10 MG, UNK
     Route: 048
  2. EVEROLIMUS. [Suspect]
     Active Substance: EVEROLIMUS
     Indication: PANCREATIC NEUROENDOCRINE TUMOUR METASTATIC
     Dosage: 10 MG, UNK
     Route: 048
     Dates: start: 201608, end: 201706
  3. LANREOTIDE [Concomitant]
     Active Substance: LANREOTIDE
     Indication: PANCREATIC NEUROENDOCRINE TUMOUR METASTATIC
     Dosage: 120 MG, UNK
     Route: 058
     Dates: start: 201510
  4. TIOTROPIUM [Concomitant]
     Active Substance: TIOTROPIUM
     Indication: ASTHMA
     Dosage: 2.5 UG, UNK
     Route: 055

REACTIONS (6)
  - Nausea [Recovered/Resolved with Sequelae]
  - Vomiting [Recovered/Resolved with Sequelae]
  - Nephrotic syndrome [Not Recovered/Not Resolved]
  - Hypoglycaemia [Recovered/Resolved]
  - Protein urine present [Recovering/Resolving]
  - Urine albumin/creatinine ratio increased [Recovering/Resolving]

NARRATIVE: CASE EVENT DATE: 201705
